FAERS Safety Report 5566949-1 (Version None)
Quarter: 2007Q4

REPORT INFORMATION
  Report Type: 
  Country: None (occurrence: None)
  Receive Date: 20071219
  Receipt Date: 20070523
  Transmission Date: 20080405
  Serious: No
  Sender: FDA-Public Use
  Company Number: US-BRISTOL-MYERS SQUIBB COMPANY-13789870

PATIENT
  Sex: Male
  Weight: 61 kg

DRUGS (5)
  1. PRAVASTATIN SODIUM [Suspect]
     Indication: BLOOD CHOLESTEROL INCREASED
     Route: 048
  2. FLOMAX [Concomitant]
  3. FLOMAX [Concomitant]
     Route: 048
  4. SERTRALINE [Concomitant]
     Route: 048
  5. TRAZODONE HCL [Concomitant]
     Route: 048

REACTIONS (3)
  - FATIGUE [None]
  - PRURITUS [None]
  - URTICARIA [None]
